FAERS Safety Report 8028061-1 (Version None)
Quarter: 2012Q1

REPORT INFORMATION
  Report Type: 
  Country: None (occurrence: None)
  Receive Date: 20120106
  Receipt Date: 20111229
  Transmission Date: 20120608
  Serious: Yes (Death, Other)
  Sender: FDA-Public Use
  Company Number: US-ABBOTT-11P-163-0887899-00

PATIENT
  Age: 28 Year
  Sex: Female

DRUGS (2)
  1. VALPROIC ACID [Suspect]
     Indication: PRODUCT USED FOR UNKNOWN INDICATION
     Dosage: INGESTION OF ABOUT 260
  2. ZIPRASIDONE HYDROCHLORIDE [Suspect]
     Indication: PRODUCT USED FOR UNKNOWN INDICATION
     Dosage: INGESTION OF ABOUT 40 TABLETS

REACTIONS (5)
  - RESPIRATORY FAILURE [None]
  - COMPLETED SUICIDE [None]
  - OVERDOSE [None]
  - HYPOTENSION [None]
  - CARDIO-RESPIRATORY ARREST [None]
